FAERS Safety Report 4964434-9 (Version None)
Quarter: 2006Q1

REPORT INFORMATION
  Report Type: 
  Country: None (occurrence: None)
  Receive Date: 20060331
  Receipt Date: 20060322
  Transmission Date: 20060701
  Serious: Yes (Other)
  Sender: FDA-Public Use
  Company Number: 2006-03-1549

PATIENT
  Age: 67 Year
  Sex: Female

DRUGS (1)
  1. CELESTAMINE TAB [Suspect]
     Dosage: 1 TAB ORAL
     Route: 048
     Dates: start: 20030701, end: 20030701

REACTIONS (1)
  - AGRANULOCYTOSIS [None]
